FAERS Safety Report 10818659 (Version 1)
Quarter: 2015Q1

REPORT INFORMATION
  Report Type: Spontaneous
  Country: US (occurrence: US)
  Receive Date: 20150218
  Receipt Date: 20150218
  Transmission Date: 20150721
  Serious: Yes (Death, Other)
  Sender: FDA-Public Use
  Company Number: US-009507513-1502USA006416

PATIENT
  Age: 77 Year
  Sex: Female

DRUGS (1)
  1. SOLARCAINE COOL ALOE [Suspect]
     Active Substance: LIDOCAINE HYDROCHLORIDE
     Indication: PRODUCT USED FOR UNKNOWN INDICATION
     Dosage: UNK, ONCE
     Route: 051

REACTIONS (5)
  - Medication error [Fatal]
  - Bradycardia [Fatal]
  - Cardiac arrest [Fatal]
  - Unresponsive to stimuli [Fatal]
  - Seizure [Fatal]
